FAERS Safety Report 8374541-9 (Version None)
Quarter: 2012Q2

REPORT INFORMATION
  Report Type: 
  Country: None (occurrence: None)
  Receive Date: 20120521
  Receipt Date: 20120516
  Transmission Date: 20120825
  Serious: Yes (Disabling)
  Sender: FDA-Public Use
  Company Number: US-PFIZER INC-2012119698

PATIENT
  Sex: Female
  Weight: 58.503 kg

DRUGS (3)
  1. PREMPRO [Suspect]
     Indication: MENOPAUSAL SYMPTOMS
     Dosage: UNK, 1X/DAY
     Route: 048
  2. PREMPRO [Suspect]
     Indication: OESTROGEN REPLACEMENT THERAPY
     Dosage: 0.3/1.5 MG, 1X/DAY
     Route: 048
  3. PREMPRO [Suspect]
     Dosage: 0.3/1.5MG AND 0.45/1.5MG ON ALTERNATE DAYS
     Route: 048

REACTIONS (2)
  - MALAISE [None]
  - RHEUMATOID ARTHRITIS [None]
